FAERS Safety Report 20854794 (Version 1)
Quarter: 2022Q2

REPORT INFORMATION
  Report Type: Report from Study
  Country: NL (occurrence: None)
  Receive Date: 20220520
  Receipt Date: 20220520
  Transmission Date: 20220720
  Serious: Yes (Hospitalization)
  Sender: FDA-Public Use
  Company Number: NL-ROCHE-3097463

PATIENT
  Age: 72 Year
  Sex: Female

DRUGS (2)
  1. PACLITAXEL [Suspect]
     Active Substance: PACLITAXEL
     Indication: Triple negative breast cancer
     Dosage: 11/APR/2022 WAS LAST DATE STUDY DRUG PRIOR TO ADMINISTRATED, ONCE IN 4 WEEK
     Route: 042
     Dates: start: 20210125
  2. ATEZOLIZUMAB [Suspect]
     Active Substance: ATEZOLIZUMAB
     Indication: Triple negative breast cancer
     Dosage: 11/APR/2022 WAS LAST DATE STUDY DRUG PRIOR TO ADMINISTRATED, ONCE IN 4 WEEK
     Route: 042
     Dates: start: 20210125

REACTIONS (1)
  - Gastroenteritis [Recovered/Resolved]

NARRATIVE: CASE EVENT DATE: 20220417
